FAERS Safety Report 9282142 (Version 1)
Quarter: 2013Q2

REPORT INFORMATION
  Report Type: Spontaneous
  Country: US (occurrence: None)
  Receive Date: 20130508
  Receipt Date: 20130508
  Transmission Date: 20140414
  Serious: Yes (Hospitalization)
  Sender: FDA-Public Use
  Company Number: None

PATIENT
  Age: 52 Year
  Sex: Male
  Weight: 90 kg

DRUGS (1)
  1. IPILIMUMAB [Suspect]
     Indication: MALIGNANT MELANOMA
     Dosage: Q3WEEKS
     Route: 042
     Dates: start: 201011, end: 201101

REACTIONS (11)
  - Blindness unilateral [None]
  - Visual acuity reduced [None]
  - Hypophysitis [None]
  - Optic neuritis [None]
  - Autoimmune disorder [None]
  - Blood thyroid stimulating hormone decreased [None]
  - Thyroxine free decreased [None]
  - Blood follicle stimulating hormone decreased [None]
  - Blood testosterone decreased [None]
  - Blood cortisol decreased [None]
  - Blood prolactin decreased [None]
